FAERS Safety Report 21867079 (Version 1)
Quarter: 2023Q1

REPORT INFORMATION
  Report Type: Report from Study
  Country: US (occurrence: US)
  Receive Date: 20230116
  Receipt Date: 20230116
  Transmission Date: 20230417
  Serious: No
  Sender: FDA-Public Use
  Company Number: US-ABBVIE-4270908

PATIENT
  Sex: Male

DRUGS (12)
  1. VENCLEXTA [Suspect]
     Active Substance: VENETOCLAX
     Indication: Chronic lymphocytic leukaemia
     Route: 048
     Dates: end: 20230110
  2. Zinc 50 MG [Concomitant]
     Indication: Product used for unknown indication
     Route: 048
  3. Melatonin 1 MG [Concomitant]
     Indication: Product used for unknown indication
     Route: 048
  4. CURCUMIN [Concomitant]
     Active Substance: CURCUMIN
     Indication: Product used for unknown indication
     Dosage: POWDER
  5. Procrit 40000 UN [Concomitant]
     Indication: Product used for unknown indication
     Dosage: INJECTION SOLUTION
  6. FERAHEME [Concomitant]
     Active Substance: FERUMOXYTOL NON-STOICHIOMETRIC MAGNETITE
     Indication: Product used for unknown indication
     Dosage: INTRAVENOUS SOLUTION
  7. Folic Acid 1 MG [Concomitant]
     Indication: Product used for unknown indication
     Route: 048
  8. Vitamin D3  250 MCG [Concomitant]
     Indication: Product used for unknown indication
  9. VITAMIN C [Concomitant]
     Active Substance: ASCORBIC ACID
     Indication: Product used for unknown indication
  10. Quercetin 250 MG [Concomitant]
     Indication: Product used for unknown indication
     Route: 048
  11. RITUXAN [Concomitant]
     Active Substance: RITUXIMAB
     Indication: Product used for unknown indication
  12. CREON [Concomitant]
     Active Substance: PANCRELIPASE AMYLASE\PANCRELIPASE LIPASE\PANCRELIPASE PROTEASE
     Indication: Product used for unknown indication
     Dosage: 24000-76000 UNITS

REACTIONS (1)
  - White blood cell count decreased [Not Recovered/Not Resolved]
